FAERS Safety Report 7910113-5 (Version None)
Quarter: 2011Q4

REPORT INFORMATION
  Report Type: 
  Country: None (occurrence: None)
  Receive Date: 20111111
  Receipt Date: 20111027
  Transmission Date: 20120403
  Serious: Yes (Other)
  Sender: FDA-Public Use
  Company Number: DE-ROCHE-1007041

PATIENT
  Sex: Female
  Weight: 67 kg

DRUGS (3)
  1. FLUTICASONE PROPIONATE/SALMETEROL [Concomitant]
     Dosage: 50/250 UG
  2. OMALIZUMAB [Suspect]
     Indication: ASTHMA
     Route: 058
     Dates: start: 20070306, end: 20100902
  3. BERODUAL [Concomitant]

REACTIONS (1)
  - ASTHMA [None]
